FAERS Safety Report 8544988-6 (Version None)
Quarter: 2012Q3

REPORT INFORMATION
  Report Type: 
  Country: None (occurrence: None)
  Receive Date: 20120727
  Receipt Date: 20120719
  Transmission Date: 20120928
  Serious: Yes (Hospitalization)
  Sender: FDA-Public Use
  Company Number: US-VIIV HEALTHCARE LIMITED-A0985268A

PATIENT
  Age: 49 Year
  Sex: Male

DRUGS (4)
  1. ABACAVIR [Suspect]
     Indication: PRODUCT USED FOR UNKNOWN INDICATION
     Route: 065
  2. IBUPROFEN [Concomitant]
  3. EPZICOM [Suspect]
     Indication: HIV INFECTION
     Dosage: 600MG SINGLE DOSE
     Route: 048
     Dates: start: 20120706, end: 20120706
  4. ISENTRESS [Concomitant]

REACTIONS (4)
  - SYNCOPE [None]
  - ERYTHEMA [None]
  - FALL [None]
  - HYPERSENSITIVITY [None]
